FAERS Safety Report 5375580-2 (Version None)
Quarter: 2007Q2

REPORT INFORMATION
  Report Type: 
  Country: None (occurrence: None)
  Receive Date: 20070627
  Receipt Date: 20070612
  Transmission Date: 20071010
  Serious: Yes (Other)
  Sender: FDA-Public Use
  Company Number: DSJ-2007-03505

PATIENT
  Age: 65 Year
  Sex: Male
  Weight: 59.5 kg

DRUGS (4)
  1. OLMETEC (OLMESARTAN MEDOXOMIL) (TABLET) (OLMESARTAN MEDOXOMIL) [Suspect]
     Indication: ESSENTIAL HYPERTENSION
     Dosage: 10 MG (1 IN 1 D), PER ORAL
     Route: 048
     Dates: start: 20060222
  2. BAYASPIRIN (ACETYLSALICYLIC ACID) (ACETYLSALICYLIC ACID) [Concomitant]
  3. DEPAS (ETIZOLAM) (ETIZOLAM) [Concomitant]
  4. MAGNESIUM OXIDE (MAGNESIUM OXIDE) (MAGNESIUM OXIDE) [Concomitant]

REACTIONS (1)
  - CEREBRAL INFARCTION [None]
